FAERS Safety Report 4730947-8 (Version None)
Quarter: 2005Q3

REPORT INFORMATION
  Report Type: 
  Country: None (occurrence: None)
  Receive Date: 20050726
  Receipt Date: 20041105
  Transmission Date: 20060218
  Serious: Yes (Life-Threatening, Hospitalization, Other)
  Sender: FDA-Public Use
  Company Number: 04GER0206

PATIENT
  Age: 76 Year
  Sex: Male

DRUGS (11)
  1. AGGRASTAT [Suspect]
     Indication: ACUTE CORONARY SYNDROME
     Dosage: 7.5ML BOLUS; MAINTENACE:  1.5ML/H
     Route: 040
     Dates: start: 20040824, end: 20040824
  2. HEPARIN [Concomitant]
  3. CLOPIDOGREL BISULFATE [Concomitant]
  4. ASPIRIN [Concomitant]
  5. ATORVASTATIN CALCIUM [Concomitant]
  6. BISOPROLOL FUMARATE [Concomitant]
  7. RAMIPRIL [Concomitant]
  8. PANTOPRAZOLE SODIUM [Concomitant]
  9. ENOXAPARIN SODIUM [Concomitant]
  10. CLOPIDOGREL BISULFATE [Concomitant]
  11. HEPARIN [Concomitant]

REACTIONS (5)
  - CHILLS [None]
  - CORONARY ARTERY RESTENOSIS [None]
  - HAEMATOCRIT DECREASED [None]
  - HAEMOGLOBIN DECREASED [None]
  - THROMBOCYTOPENIA [None]
